FAERS Safety Report 15193376 (Version 1)
Quarter: 2018Q3

REPORT INFORMATION
  Report Type: Spontaneous
  Country: PL (occurrence: PL)
  Receive Date: 20180725
  Receipt Date: 20180725
  Transmission Date: 20181010
  Serious: Yes (Other)
  Sender: FDA-Public Use
  Company Number: PL-AXELLIA-001780

PATIENT
  Age: 78 Year
  Sex: Female

DRUGS (1)
  1. VANCOMYCIN [Suspect]
     Active Substance: VANCOMYCIN
     Indication: CLOSTRIDIUM DIFFICILE INFECTION
     Dosage: 500 MG, FOR 14 DAYS
     Route: 048

REACTIONS (5)
  - Weight decreased [Unknown]
  - Abdominal pain upper [Unknown]
  - Pyrexia [Unknown]
  - Clostridium difficile infection [Unknown]
  - Diarrhoea [Unknown]
